FAERS Safety Report 12572276 (Version 1)
Quarter: 2016Q3

REPORT INFORMATION
  Report Type: Spontaneous
  Country: US (occurrence: US)
  Receive Date: 20160719
  Receipt Date: 20160719
  Transmission Date: 20161109
  Serious: No
  Sender: FDA-Public Use
  Company Number: US-MEDA-2016070042

PATIENT
  Age: 71 Year
  Sex: Male
  Weight: 73 kg

DRUGS (5)
  1. MUSE [Suspect]
     Active Substance: ALPROSTADIL
     Indication: ERECTILE DYSFUNCTION
     Route: 066
     Dates: start: 20160620, end: 20160620
  2. SIMVASTATIN. [Concomitant]
     Active Substance: SIMVASTATIN
  3. MUSE [Suspect]
     Active Substance: ALPROSTADIL
     Indication: ERECTILE DYSFUNCTION
     Route: 066
     Dates: start: 20160702
  4. LISINOPRIL. [Concomitant]
     Active Substance: LISINOPRIL
  5. HYDROCHLOROTHIAZIDE. [Concomitant]
     Active Substance: HYDROCHLOROTHIAZIDE
     Indication: HYPERTENSION
     Route: 048
     Dates: start: 1981

REACTIONS (1)
  - Drug ineffective [Unknown]

NARRATIVE: CASE EVENT DATE: 20160620
